FAERS Safety Report 8505475-4 (Version None)
Quarter: 2012Q3

REPORT INFORMATION
  Report Type: 
  Country: None (occurrence: None)
  Receive Date: 20120712
  Receipt Date: 20120706
  Transmission Date: 20120928
  Serious: Yes (Life-Threatening, Disabling, Other)
  Sender: FDA-Public Use
  Company Number: AU-PFIZER INC-2012114823

PATIENT
  Age: 65 Year
  Sex: Male
  Weight: 120 kg

DRUGS (4)
  1. INDAPAMIDE [Concomitant]
     Dosage: 2.5 G, 1X/DAY
  2. ATORVASTATIN CALCIUM [Suspect]
     Dosage: 40 MG, 1X/DAY
     Route: 065
     Dates: start: 20120411, end: 20120425
  3. IRBESARTAN + HYDROCHLOROTHIAZIDE [Concomitant]
     Dosage: 12.5/300 UNK, ONCE DAILY
  4. CENTRUM ADVANCE 50+ [Concomitant]
     Dosage: TABLET, ONCE DAILY

REACTIONS (4)
  - VISUAL IMPAIRMENT [None]
  - SOMNOLENCE [None]
  - HALLUCINATION [None]
  - BALANCE DISORDER [None]
